FAERS Safety Report 12813387 (Version 1)
Quarter: 2016Q4

REPORT INFORMATION
  Report Type: Spontaneous
  Country: US (occurrence: US)
  Receive Date: 20161005
  Receipt Date: 20161005
  Transmission Date: 20170207
  Serious: No
  Sender: FDA-Public Use
  Company Number: US-AMGEN-USASP2016025312

PATIENT
  Sex: Female

DRUGS (3)
  1. ANASTROZOLE. [Concomitant]
     Active Substance: ANASTROZOLE
  2. PROLIA [Suspect]
     Active Substance: DENOSUMAB
     Indication: PRODUCT USED FOR UNKNOWN INDICATION
     Dosage: UNK UNK, Q6MO
     Route: 065
     Dates: start: 2014
  3. ATORVASTATIN [Concomitant]
     Active Substance: ATORVASTATIN

REACTIONS (9)
  - Hypersensitivity [Unknown]
  - Visual impairment [Unknown]
  - Eye inflammation [Unknown]
  - Skin exfoliation [Unknown]
  - Dermatitis contact [Unknown]
  - Pruritus [Unknown]
  - Erythema [Unknown]
  - Condition aggravated [Unknown]
  - Rhinorrhoea [Unknown]
